FAERS Safety Report 8298776-9 (Version None)
Quarter: 2012Q2

REPORT INFORMATION
  Report Type: 
  Country: None (occurrence: None)
  Receive Date: 20120419
  Receipt Date: 20120417
  Transmission Date: 20120825
  Serious: Yes (Life-Threatening, Hospitalization, Other)
  Sender: FDA-Public Use
  Company Number: US-JNJFOC-20120214567

PATIENT
  Sex: Female
  Weight: 68.04 kg

DRUGS (7)
  1. NEXIUM [Concomitant]
     Route: 048
  2. LISINOPRIL [Concomitant]
     Route: 048
  3. COREG [Concomitant]
  4. LUNESTA [Concomitant]
     Route: 048
  5. XARELTO [Suspect]
     Indication: DEEP VEIN THROMBOSIS
     Route: 048
     Dates: start: 20120214, end: 20120223
  6. CO-Q10 [Concomitant]
  7. PERCOCET [Concomitant]
     Route: 048

REACTIONS (5)
  - THROMBOCYTOPENIA [None]
  - PULMONARY EMBOLISM [None]
  - HYPERTENSION [None]
  - ADRENAL HAEMORRHAGE [None]
  - CONSTIPATION [None]
